FAERS Safety Report 12092945 (Version 1)
Quarter: 2016Q1

REPORT INFORMATION
  Report Type: Spontaneous
  Country: US (occurrence: None)
  Receive Date: 20160218
  Receipt Date: 20160218
  Transmission Date: 20160526
  Serious: Yes (Disabling)
  Sender: FDA-Public Use
  Company Number: None

PATIENT
  Age: 58 Year
  Sex: Female
  Weight: 49.9 kg

DRUGS (8)
  1. ALIVE! NATURES WAY MULTIVITAMIN [Concomitant]
     Active Substance: MINERALS\VITAMINS
  2. PREMARIN VAGINAL [Suspect]
     Active Substance: ESTROGENS, CONJUGATED
     Indication: ATROPHY
     Dosage: 0.625MG/GM 1/2 APPLICATOR VAGINAL EVERY NIGHT FOR 2 WKS,  DECREASE TO ONCE A DAY 3-2 TIMES PER WEEK
     Route: 067
     Dates: start: 201302, end: 201511
  3. RESVERATROL [Concomitant]
     Active Substance: RESVERATROL
  4. PREMARIN VAGINAL [Suspect]
     Active Substance: ESTROGENS, CONJUGATED
     Indication: MENOPAUSAL SYMPTOMS
     Dosage: 0.625MG/GM 1/2 APPLICATOR VAGINAL EVERY NIGHT FOR 2 WKS,  DECREASE TO ONCE A DAY 3-2 TIMES PER WEEK
     Route: 067
     Dates: start: 201302, end: 201511
  5. KRILL OIL [Concomitant]
     Active Substance: DIETARY SUPPLEMENT
  6. OMEGA [Concomitant]
     Active Substance: CONVALLARIA MAJALIS\CRATAEGUS LAEVIGATA LEAF\PROXYPHYLLINE
  7. BIOTIN [Concomitant]
     Active Substance: BIOTIN
  8. LORATADINE. [Concomitant]
     Active Substance: LORATADINE

REACTIONS (2)
  - Activities of daily living impaired [None]
  - Amnesia [None]

NARRATIVE: CASE EVENT DATE: 2015
